FAERS Safety Report 4718238-2 (Version None)
Quarter: 2005Q3

REPORT INFORMATION
  Report Type: 
  Country: None (occurrence: None)
  Receive Date: 20050719
  Receipt Date: 20050311
  Transmission Date: 20060218
  Serious: Yes (Hospitalization, Other)
  Sender: FDA-Public Use
  Company Number: 2005033934

PATIENT
  Sex: Male

DRUGS (14)
  1. CELEBREX [Suspect]
     Indication: ARTHRITIS
     Dosage: 200 MG (200 MG, 1 IN 1 D), ORAL
     Route: 048
     Dates: end: 20040701
  2. POTASSIUM CHLORIDE [Concomitant]
  3. ATORVASTATIN CALCIUM [Concomitant]
  4. SELENIUM (SELENIUM) [Concomitant]
  5. ASPIRIN [Concomitant]
  6. IRON (IRON) [Concomitant]
  7. LEVOTHYROXINE SODIUM [Concomitant]
  8. FUROSEMIDE [Concomitant]
  9. METOPROLOL TARTRATE [Concomitant]
  10. ASCORBIC ACID [Concomitant]
  11. MAGNESIUM (MAGNESIUM) [Concomitant]
  12. GLUCOSAMINE (GLUCOSAMINE) [Concomitant]
  13. DIGOXIN [Concomitant]
  14. FOLIC ACID [Concomitant]

REACTIONS (4)
  - CHEST PAIN [None]
  - DRUG INEFFECTIVE [None]
  - FEELING ABNORMAL [None]
  - PAIN [None]
